FAERS Safety Report 9915692 (Version 2)
Quarter: 2014Q1

REPORT INFORMATION
  Report Type: Spontaneous
  Country: US (occurrence: US)
  Receive Date: 20140221
  Receipt Date: 20140221
  Transmission Date: 20141002
  Serious: Yes (Hospitalization, Other)
  Sender: FDA-Public Use
  Company Number: US-ROCHE-1328646

PATIENT
  Age: 77 Year
  Sex: Female

DRUGS (1)
  1. XELODA [Suspect]
     Indication: BREAST CANCER METASTATIC
     Dosage: 7 DAYS ON, 7 DAYS OFF
     Route: 048
     Dates: start: 201103, end: 20131130

REACTIONS (11)
  - Cardiac failure congestive [Recovered/Resolved]
  - Blood blister [Recovered/Resolved]
  - Palmar-plantar erythrodysaesthesia syndrome [Unknown]
  - Blister [Recovered/Resolved]
  - Muscle twitching [Recovered/Resolved]
  - Skin fissures [Recovered/Resolved]
  - Pleural effusion [Recovered/Resolved]
  - Fluid overload [Recovered/Resolved]
  - Hypoxia [Recovered/Resolved]
  - Pain [Unknown]
  - Pulmonary oedema [Recovered/Resolved]
